FAERS Safety Report 19886751 (Version 1)
Quarter: 2021Q3

REPORT INFORMATION
  Report Type: Spontaneous
  Country: US (occurrence: US)
  Receive Date: 20210927
  Receipt Date: 20210927
  Transmission Date: 20211014
  Serious: No
  Sender: FDA-Public Use
  Company Number: US-GW PHARMA-202109USGW04619

PATIENT

DRUGS (1)
  1. EPIDIOLEX [Suspect]
     Active Substance: CANNABIDIOL
     Indication: PRODUCT USED FOR UNKNOWN INDICATION
     Dosage: UNK, (HAD BEEN ON EPIDIOLEX FOR 15 MONTHS)
     Route: 048
     Dates: start: 2020

REACTIONS (2)
  - Weight decreased [Unknown]
  - Diarrhoea [Unknown]
